FAERS Safety Report 16993554 (Version 2)
Quarter: 2019Q4

REPORT INFORMATION
  Report Type: Spontaneous
  Country: US (occurrence: US)
  Receive Date: 20191105
  Receipt Date: 20191115
  Transmission Date: 20200122
  Serious: Yes (Hospitalization, Other)
  Sender: FDA-Public Use
  Company Number: US-PFIZER INC-2018035233

PATIENT
  Age: 43 Year
  Sex: Female

DRUGS (1)
  1. REVATIO [Suspect]
     Active Substance: SILDENAFIL CITRATE
     Indication: PULMONARY HYPERTENSION
     Dosage: 80 MG, 3X/DAY [TAKE 4 TABLETS BY MOUTH EVERY 8 HOURS]
     Route: 048

REACTIONS (2)
  - Prescribed overdose [Unknown]
  - Hypoxia [Unknown]
